FAERS Safety Report 4746730-3 (Version None)
Quarter: 2005Q3

REPORT INFORMATION
  Report Type: 
  Country: None (occurrence: None)
  Receive Date: 20050817
  Receipt Date: 20050809
  Transmission Date: 20060218
  Serious: Yes (Other)
  Sender: FDA-Public Use
  Company Number: JP-GLAXOSMITHKLINE-B0390480A

PATIENT
  Age: 71 Year
  Sex: Male

DRUGS (1)
  1. ZOVIRAX [Suspect]
     Indication: HERPES VIRUS INFECTION
     Dosage: 200MG FOUR TIMES PER DAY
     Route: 048
     Dates: start: 20050804, end: 20050810

REACTIONS (3)
  - DELUSION [None]
  - HALLUCINATION [None]
  - HALLUCINATION, VISUAL [None]
